FAERS Safety Report 7471113-5 (Version None)
Quarter: 2011Q2

REPORT INFORMATION
  Report Type: 
  Country: None (occurrence: None)
  Receive Date: 20110510
  Receipt Date: 20110504
  Transmission Date: 20111010
  Serious: Yes (Other)
  Sender: FDA-Public Use
  Company Number: US-PFIZER INC-2011014016

PATIENT
  Sex: Female
  Weight: 107 kg

DRUGS (7)
  1. PREMARIN [Suspect]
     Indication: OESTROGEN REPLACEMENT THERAPY
     Dosage: 1 DF, 1X/DAY
     Route: 048
     Dates: start: 19880101
  2. PREMARIN [Suspect]
     Dosage: UNK
     Route: 048
  3. LEVOTHROID [Concomitant]
     Indication: THYROID DISORDER
     Dosage: 50 UG, 1X/DAY
     Route: 048
  4. VIVELLE-DOT [Suspect]
     Indication: OESTROGEN REPLACEMENT THERAPY
     Dosage: UNK
     Route: 062
     Dates: end: 20110105
  5. ENALAPRIL [Concomitant]
     Indication: HYPERTENSION
     Dosage: 300 MG, UNK
     Route: 048
  6. ACETYLSALICYLIC ACID [Concomitant]
     Indication: CARDIAC DISORDER
     Dosage: UNK
  7. AVAPRO [Concomitant]
     Indication: HYPERTENSION
     Dosage: 300 MG, 1X/DAY

REACTIONS (18)
  - BLADDER DISORDER [None]
  - PAIN [None]
  - MYOCARDIAL INFARCTION [None]
  - CHEST PAIN [None]
  - WEIGHT INCREASED [None]
  - BLOOD URINE PRESENT [None]
  - LUNG DISORDER [None]
  - SKIN DISCOLOURATION [None]
  - SCAR [None]
  - HAIR GROWTH ABNORMAL [None]
  - HYPERTENSION [None]
  - BREAST DISCOLOURATION [None]
  - HOT FLUSH [None]
  - THROMBOSIS [None]
  - MICTURITION DISORDER [None]
  - HAIR TEXTURE ABNORMAL [None]
  - FALL [None]
  - ALOPECIA [None]
